FAERS Safety Report 9538583 (Version 1)
Quarter: 2013Q2

REPORT INFORMATION
  Report Type: Spontaneous
  Country: US (occurrence: None)
  Receive Date: 20130507
  Receipt Date: 20130507
  Transmission Date: 20140414
  Serious: No
  Sender: FDA-Public Use
  Company Number: PHEH2013US001485

PATIENT
  Age: 42 Year
  Sex: Female

DRUGS (9)
  1. AFINITOR (RAD) [Suspect]
     Indication: TUBEROUS SCLEROSIS
     Route: 048
     Dates: start: 20120621
  2. TOPAMAX (TOPIRAMATE) [Concomitant]
  3. MULTIVITAMINS (ASCORBIC ACID, ERGOCALCIFEROL, FOLIC ACID, NICOTINAMIDE, PANTHENOL, RETINOL, RIBOFLAVIN, THIAMINE HYDROCHLORIDE) [Concomitant]
  4. NUEDEXTA (DEXTROMETHORPHAN HYDROBROMIDE, QUINIDINE SULFATE) [Concomitant]
  5. SEROQUEL (QUETIAPINE FUMARATE) [Concomitant]
  6. CITALOPRAM (CITALOPRAM) [Concomitant]
  7. DOCUSATE SODIUM (DOCUSATE SODIUM) [Concomitant]
  8. LORAZEPAM (LORAZEPAM) [Concomitant]
  9. RISPERDAL (RISPERIDONE) [Concomitant]

REACTIONS (2)
  - Rash [None]
  - Nasopharyngitis [None]
